APPROVED DRUG PRODUCT: LIVALO
Active Ingredient: PITAVASTATIN CALCIUM
Strength: EQ 2MG BASE
Dosage Form/Route: TABLET;ORAL
Application: N022363 | Product #002 | TE Code: AB
Applicant: KOWA CO LTD
Approved: Aug 3, 2009 | RLD: Yes | RS: No | Type: RX